FAERS Safety Report 12205991 (Version 1)
Quarter: 2016Q1

REPORT INFORMATION
  Report Type: Report from Study
  Country: US (occurrence: US)
  Receive Date: 20160323
  Receipt Date: 20160323
  Transmission Date: 20160526
  Serious: Yes (Hospitalization)
  Sender: FDA-Public Use
  Company Number: US-EXELIXIS-CABO-16006114

PATIENT
  Age: 77 Year
  Sex: Female

DRUGS (18)
  1. DOCUSATE [Concomitant]
     Active Substance: DOCUSATE
  2. WARFARIN [Concomitant]
     Active Substance: WARFARIN
  3. ALLOPURINOL. [Concomitant]
     Active Substance: ALLOPURINOL
  4. CEPHALEXIN. [Concomitant]
     Active Substance: CEPHALEXIN
  5. MORPHINE [Concomitant]
     Active Substance: MORPHINE
  6. CALCIUM [Concomitant]
     Active Substance: CALCIUM
  7. GABAPENTIN. [Concomitant]
     Active Substance: GABAPENTIN
  8. METPHYTON [Concomitant]
  9. HYDROCODONE BITARTRATE AND ACETAMINOPHEN [Concomitant]
     Active Substance: ACETAMINOPHEN\HYDROCODONE BITARTRATE
  10. SUCRALFATE. [Concomitant]
     Active Substance: SUCRALFATE
  11. MAGNESIUM CHLORIDE. [Concomitant]
     Active Substance: MAGNESIUM CHLORIDE
  12. ACETAMINOPHEN. [Concomitant]
     Active Substance: ACETAMINOPHEN
  13. CHOLECALCIFEROL [Concomitant]
     Active Substance: CHOLECALCIFEROL
  14. FOLIC ACID. [Concomitant]
     Active Substance: FOLIC ACID
  15. COMETRIQ [Suspect]
     Active Substance: CABOZANTINIB S-MALATE
     Indication: LUNG NEOPLASM MALIGNANT
     Dosage: 60 MG, QD
     Route: 048
     Dates: start: 20160301, end: 20160318
  16. ATORVASTATIN [Concomitant]
     Active Substance: ATORVASTATIN
  17. BETAMETHASONE DIPROPIONATE. [Concomitant]
     Active Substance: BETAMETHASONE DIPROPIONATE
  18. LORAZEPAM. [Concomitant]
     Active Substance: LORAZEPAM

REACTIONS (3)
  - Off label use [Unknown]
  - Blood creatinine abnormal [Unknown]
  - Fatigue [Unknown]

NARRATIVE: CASE EVENT DATE: 201603
